FAERS Safety Report 21115150 (Version 2)
Quarter: 2022Q3

REPORT INFORMATION
  Report Type: Spontaneous
  Country: US (occurrence: US)
  Receive Date: 20220721
  Receipt Date: 20220727
  Transmission Date: 20221026
  Serious: Yes (Hospitalization)
  Sender: FDA-Public Use
  Company Number: US-SUNOVION-2022SUN002130

PATIENT
  Sex: Female

DRUGS (3)
  1. LATUDA [Suspect]
     Active Substance: LURASIDONE HYDROCHLORIDE
     Indication: Schizophrenia
     Dosage: 80 MG, QD FOR 8-9 YEARS
     Route: 048
     Dates: end: 202111
  2. COGENTIN [Suspect]
     Active Substance: BENZTROPINE MESYLATE
     Indication: Schizophrenia
     Dosage: UNK
     Route: 042
  3. INVEGA [Suspect]
     Active Substance: PALIPERIDONE
     Indication: Schizophrenia
     Dosage: UNK
     Route: 042

REACTIONS (6)
  - Mental disorder [Unknown]
  - Malaise [Unknown]
  - Paranoia [Unknown]
  - Musculoskeletal stiffness [Unknown]
  - Decreased appetite [Unknown]
  - Insomnia [Unknown]
